FAERS Safety Report 10268481 (Version 3)
Quarter: 2014Q3

REPORT INFORMATION
  Report Type: Spontaneous
  Country: US (occurrence: US)
  Receive Date: 20140630
  Receipt Date: 20140930
  Transmission Date: 20150326
  Serious: No
  Sender: FDA-Public Use
  Company Number: US-GILEAD-2014-0106525

PATIENT
  Age: 58 Year
  Sex: Female

DRUGS (5)
  1. RIBASPHERE RIBAPAK [Concomitant]
     Active Substance: RIBAVIRIN
     Indication: HEPATITIS C
     Dosage: 400 MG, UNK
     Route: 065
  2. SOVALDI [Suspect]
     Active Substance: SOFOSBUVIR
     Indication: HEPATITIS C
     Dosage: 400 MG, QD
     Route: 065
     Dates: start: 20140318, end: 20140609
  3. PEGASYS [Concomitant]
     Active Substance: PEGINTERFERON ALFA-2A
     Indication: HEPATITIS C
     Dosage: 0.5 MG, Q1WK
     Route: 058
  4. RIBASPHERE RIBAPAK [Concomitant]
     Active Substance: RIBAVIRIN
     Dosage: 600 MG, UNK
     Route: 065
  5. TRIAMTERENE. [Concomitant]
     Active Substance: TRIAMTERENE

REACTIONS (7)
  - Cheilitis [Recovered/Resolved]
  - Pruritus [Recovered/Resolved]
  - Skin ulcer [Recovered/Resolved]
  - Oral mucosal blistering [Recovered/Resolved]
  - Blister [Recovered/Resolved]
  - Lip blister [Recovered/Resolved]
  - Rash [Recovered/Resolved]

NARRATIVE: CASE EVENT DATE: 20140602
